FAERS Safety Report 12055712 (Version 1)
Quarter: 2016Q1

REPORT INFORMATION
  Report Type: Spontaneous
  Country: FR (occurrence: FR)
  Receive Date: 20160209
  Receipt Date: 20160209
  Transmission Date: 20160526
  Serious: Yes (Other)
  Sender: FDA-Public Use
  Company Number: FR-BAYER-2016-023552

PATIENT
  Age: 41 Year
  Sex: Male

DRUGS (1)
  1. ASPIRINE PROTECT [Suspect]
     Active Substance: ASPIRIN
     Dosage: UNK

REACTIONS (2)
  - Drug ineffective [None]
  - Vascular stent thrombosis [None]
